FAERS Safety Report 5649292-1 (Version None)
Quarter: 2008Q1

REPORT INFORMATION
  Report Type: 
  Country: None (occurrence: None)
  Receive Date: 20080131
  Receipt Date: 20071127
  Transmission Date: 20080703
  Serious: No
  Sender: FDA-Public Use
  Company Number: US200711006391

PATIENT
  Age: 52 Year
  Sex: Female
  Weight: 119.3 kg

DRUGS (3)
  1. BYETTA [Suspect]
     Indication: METABOLIC SYNDROME
     Dosage: 5, 10 UG, 2/D, SUBCUTANEOUS
     Route: 058
     Dates: start: 20070501, end: 20070101
  2. BYETTA [Suspect]
     Indication: METABOLIC SYNDROME
     Dosage: 5, 10 UG, 2/D, SUBCUTANEOUS
     Route: 058
     Dates: start: 20070101
  3. EXENATIDE PEN, DISPOSABLE DEVICE (EXENATIDE PEN), PEN, DISPOSABLE [Concomitant]

REACTIONS (5)
  - ANOREXIA [None]
  - HUNGER [None]
  - INJECTION SITE ERYTHEMA [None]
  - NAUSEA [None]
  - WEIGHT DECREASED [None]
